FAERS Safety Report 10606788 (Version 1)
Quarter: 2014Q4

REPORT INFORMATION
  Report Type: Spontaneous
  Country: US (occurrence: US)
  Receive Date: 20141125
  Receipt Date: 20141125
  Transmission Date: 20150529
  Serious: Yes (Other)
  Sender: FDA-Public Use
  Company Number: US-ELI_LILLY_AND_COMPANY-US201411005929

PATIENT
  Age: 50 Year
  Sex: Male

DRUGS (4)
  1. INTEGRILIN [Concomitant]
     Active Substance: EPTIFIBATIDE
  2. EFFIENT [Suspect]
     Active Substance: PRASUGREL HYDROCHLORIDE
     Indication: STENT PLACEMENT
     Dosage: 60 MG, SINGLE
  3. ANGIOMAX [Concomitant]
     Active Substance: BIVALIRUDIN
  4. EFFIENT [Suspect]
     Active Substance: PRASUGREL HYDROCHLORIDE
     Dosage: 10 MG, QD

REACTIONS (1)
  - Thrombosis in device [Recovered/Resolved]
